FAERS Safety Report 10229423 (Version 2)
Quarter: 2014Q3

REPORT INFORMATION
  Report Type: Spontaneous
  Country: US (occurrence: US)
  Receive Date: 20140611
  Receipt Date: 20140710
  Transmission Date: 20150326
  Serious: Yes (Other)
  Sender: FDA-Public Use
  Company Number: US-009507513-1405USA012004

PATIENT
  Age: 21 Year
  Sex: Female
  Weight: 133.33 kg

DRUGS (1)
  1. NEXPLANON [Suspect]
     Active Substance: ETONOGESTREL
     Indication: CONTRACEPTION
     Dosage: UNK
     Route: 059
     Dates: start: 20140519, end: 20140619

REACTIONS (11)
  - Medical device complication [Recovered/Resolved with Sequelae]
  - Surgery [Recovered/Resolved]
  - Device kink [Recovered/Resolved with Sequelae]
  - Implant site irritation [Recovered/Resolved with Sequelae]
  - Pain in extremity [Recovered/Resolved with Sequelae]
  - Complication of device insertion [Recovered/Resolved with Sequelae]
  - Limb discomfort [Recovered/Resolved with Sequelae]
  - Device dislocation [Recovered/Resolved with Sequelae]
  - Device difficult to use [Recovered/Resolved with Sequelae]
  - Medical device complication [Recovered/Resolved with Sequelae]
  - Device expulsion [Recovered/Resolved with Sequelae]

NARRATIVE: CASE EVENT DATE: 2014
